FAERS Safety Report 18327721 (Version 3)
Quarter: 2022Q1

REPORT INFORMATION
  Report Type: Spontaneous
  Country: GB (occurrence: GB)
  Receive Date: 20200930
  Receipt Date: 20220223
  Transmission Date: 20220423
  Serious: Yes (Hospitalization, Other)
  Sender: FDA-Public Use
  Company Number: GB-GLAXOSMITHKLINE-GB2020EME193349

PATIENT
  Age: 63 Year
  Sex: Male

DRUGS (3)
  1. NUCALA [Suspect]
     Active Substance: MEPOLIZUMAB
     Indication: Product used for unknown indication
     Dosage: 100 MG, Z EVERY 4 WEEK
     Route: 058
  2. NUCALA [Suspect]
     Active Substance: MEPOLIZUMAB
     Indication: Asthma
     Dosage: 100 MG, Z (4 WEEKLY)
     Route: 058
  3. BECLOMETHASONE\FORMOTEROL [Concomitant]
     Active Substance: BECLOMETHASONE\FORMOTEROL
     Indication: Product used for unknown indication
     Dosage: 3 PUFF(S), QD

REACTIONS (18)
  - Intestinal resection [Unknown]
  - Anorectal discomfort [Unknown]
  - Abdominal discomfort [Unknown]
  - Angina pectoris [Unknown]
  - Lower respiratory tract infection [Recovered/Resolved]
  - Wheezing [Unknown]
  - Cough [Unknown]
  - Dizziness [Unknown]
  - Chest discomfort [Unknown]
  - Asthma [Unknown]
  - Emphysema [Unknown]
  - Dyspnoea exertional [Unknown]
  - Dyspnoea [Unknown]
  - Asthenia [Unknown]
  - Oxygen saturation decreased [Unknown]
  - Peak expiratory flow rate decreased [Unknown]
  - Malaise [Unknown]
  - SARS-CoV-2 test positive [Unknown]

NARRATIVE: CASE EVENT DATE: 20200701
